FAERS Safety Report 8881120 (Version 2)
Quarter: 2013Q1

REPORT INFORMATION
  Report Type: Spontaneous
  Country: US (occurrence: US)
  Receive Date: 20121031
  Receipt Date: 20130107
  Transmission Date: 20140127
  Serious: Yes (Other)
  Sender: FDA-Public Use
  Company Number: US-TEVA-366981USA

PATIENT
  Age: 45 Year
  Sex: Female
  Weight: 68.1 kg

DRUGS (3)
  1. PROAIR HFA [Suspect]
     Indication: ASTHMA
     Dosage: PRN
     Route: 055
     Dates: start: 2010
  2. INFLUENZA VACCINE [Concomitant]
     Indication: IMMUNISATION
     Route: 030
     Dates: start: 20121024, end: 20121024
  3. YAZ [Concomitant]
     Route: 048

REACTIONS (12)
  - Asthma [Recovered/Resolved]
  - Hypersensitivity [Recovered/Resolved]
  - Salivary hypersecretion [Recovered/Resolved]
  - Swollen tongue [Not Recovered/Not Resolved]
  - Stomatitis [Not Recovered/Not Resolved]
  - Feeling hot [Recovered/Resolved]
  - Pyrexia [Recovered/Resolved]
  - Hypoaesthesia oral [Not Recovered/Not Resolved]
  - Lip pain [Not Recovered/Not Resolved]
  - Oropharyngeal pain [Not Recovered/Not Resolved]
  - Oral pain [Not Recovered/Not Resolved]
  - Headache [Recovered/Resolved]
